FAERS Safety Report 8796334 (Version 1)
Quarter: 2012Q4

REPORT INFORMATION
  Report Type: 
  Country: BE (occurrence: BE)
  Receive Date: 20120919
  Receipt Date: 20120919
  Transmission Date: 20130627
  Serious: Yes (Hospitalization, Other)
  Sender: FDA-Public Use
  Company Number: BE-PFIZER INC-2012226509

PATIENT
  Age: 6 Day
  Sex: Male

DRUGS (3)
  1. VIAGRA [Suspect]
     Indication: PULMONARY ARTERIAL HYPERTENSION
     Dosage: 3 mg, 8x/day
     Route: 048
     Dates: start: 20120710
  2. MORPHINE [Concomitant]
     Dosage: UNK
     Route: 042
  3. DORMICUM FOR INJECTION [Concomitant]
     Dosage: UNK
     Route: 042

REACTIONS (3)
  - Methaemoglobinaemia [Recovering/Resolving]
  - General physical health deterioration [Unknown]
  - Off label use [Unknown]
